FAERS Safety Report 5948551-2 (Version None)
Quarter: 2008Q4

REPORT INFORMATION
  Report Type: 
  Country: None (occurrence: None)
  Receive Date: 20081111
  Receipt Date: 20081024
  Transmission Date: 20090506
  Serious: Yes (Other)
  Sender: FDA-Public Use
  Company Number: DE-ASTRAZENECA-2008SE05127

PATIENT
  Age: 67 Year
  Sex: Female

DRUGS (5)
  1. BELOC-ZOK COMP [Suspect]
     Indication: HYPERTENSION
     Dosage: 1/2 TABLET TWICE A DAY
     Route: 048
  2. KARVEZIDE [Concomitant]
  3. LEVOTHYROXINE SODIUM [Concomitant]
  4. VENLAFAXINE HCL [Concomitant]
     Dates: start: 20070101, end: 20081001
  5. SEROQUEL [Concomitant]
     Dates: start: 20070101

REACTIONS (2)
  - DIABETES MELLITUS [None]
  - GASTROINTESTINAL DISORDER [None]
